FAERS Safety Report 22961659 (Version 4)
Quarter: 2023Q4

REPORT INFORMATION
  Report Type: Report from Study
  Country: US (occurrence: US)
  Receive Date: 20230920
  Receipt Date: 20231201
  Transmission Date: 20240110
  Serious: Yes (Hospitalization, Other)
  Sender: FDA-Public Use
  Company Number: US-ABBVIE-5410864

PATIENT
  Sex: Male
  Weight: 86 kg

DRUGS (1)
  1. RINVOQ [Suspect]
     Active Substance: UPADACITINIB
     Indication: Crohn^s disease
     Dosage: EXTENDED RELEASE, ?FORM STRENGTH: 45 MG, ?45 MG 1 TABLET BY MOUTH ONCE A DAY FOR 12 WEEKS
     Route: 048
     Dates: start: 20230612, end: 20230914

REACTIONS (10)
  - Fall [Unknown]
  - Dizziness [Unknown]
  - Pain [Unknown]
  - Diarrhoea [Not Recovered/Not Resolved]
  - Pulmonary embolism [Recovered/Resolved]
  - Pain in extremity [Unknown]
  - Deep vein thrombosis [Unknown]
  - Rib fracture [Unknown]
  - Muscle spasms [Not Recovered/Not Resolved]
  - Abdominal pain [Not Recovered/Not Resolved]

NARRATIVE: CASE EVENT DATE: 20230101
